FAERS Safety Report 9216764 (Version 2)
Quarter: 2013Q2

REPORT INFORMATION
  Report Type: Spontaneous
  Country: VE (occurrence: VE)
  Receive Date: 20130408
  Receipt Date: 20130415
  Transmission Date: 20140414
  Serious: Yes (Death)
  Sender: FDA-Public Use
  Company Number: VE-PFIZER INC-2013108506

PATIENT
  Age: 77 Year
  Sex: Male

DRUGS (1)
  1. LYRICA [Suspect]
     Indication: FRACTURE
     Dosage: 75 MG, 2X/DAY
     Route: 048
     Dates: start: 201303, end: 201303

REACTIONS (3)
  - Lung disorder [Fatal]
  - Incoherent [Recovered/Resolved]
  - Tremor [Recovered/Resolved]
